FAERS Safety Report 10080387 (Version 2)
Quarter: 2014Q2

REPORT INFORMATION
  Report Type: Spontaneous
  Country: IE (occurrence: IE)
  Receive Date: 20140416
  Receipt Date: 20140501
  Transmission Date: 20141212
  Serious: Yes (Other)
  Sender: FDA-Public Use
  Company Number: IE-AMGEN INC.-IRLSP2014026074

PATIENT
  Age: 58 Year
  Sex: Female

DRUGS (11)
  1. NEULASTA [Suspect]
     Indication: NON-HODGKIN^S LYMPHOMA
     Dosage: 6MG/0.6ML, POST CHEMO EVERY 3 WEEKS
     Route: 058
     Dates: start: 20140403
  2. PREDNISOLONE [Concomitant]
     Indication: NON-HODGKIN^S LYMPHOMA
     Dosage: UNK
  3. CYCLOPHOSPHAMIDE [Concomitant]
     Indication: NON-HODGKIN^S LYMPHOMA
     Dosage: UNK
  4. DOXORUBICIN [Concomitant]
     Indication: NON-HODGKIN^S LYMPHOMA
     Dosage: UNK
  5. RITUXIMAB [Concomitant]
     Indication: NON-HODGKIN^S LYMPHOMA
     Dosage: UNK
  6. ONCOVIN [Concomitant]
     Indication: NON-HODGKIN^S LYMPHOMA
     Dosage: UNK
  7. VALOID                             /00014902/ [Concomitant]
     Dosage: UNK
  8. STELAZINE [Concomitant]
     Dosage: UNK
  9. ALLOPURINOL [Concomitant]
     Dosage: UNK
  10. OMEPRAZOLE [Concomitant]
     Dosage: UNK
  11. SEPTRIN [Concomitant]
     Dosage: UNK

REACTIONS (4)
  - Arthralgia [Recovering/Resolving]
  - Back pain [Recovering/Resolving]
  - Pelvic pain [Recovering/Resolving]
  - Bone pain [Recovered/Resolved]
